FAERS Safety Report 23100093 (Version 1)
Quarter: 2023Q4

REPORT INFORMATION
  Report Type: Spontaneous
  Country: US (occurrence: US)
  Receive Date: 20231024
  Receipt Date: 20231024
  Transmission Date: 20240109
  Serious: Yes (Other)
  Sender: FDA-Public Use
  Company Number: US-PFIZER INC-PV202300170648

PATIENT
  Age: 82 Year
  Sex: Female

DRUGS (1)
  1. LINEZOLID [Suspect]
     Active Substance: LINEZOLID
     Dosage: UNK

REACTIONS (4)
  - Myelosuppression [Unknown]
  - Lactic acidosis [Unknown]
  - Drug-induced liver injury [Unknown]
  - Toxicity to various agents [Unknown]
